FAERS Safety Report 20000918 (Version 1)
Quarter: 2021Q4

REPORT INFORMATION
  Report Type: Spontaneous
  Country: US (occurrence: US)
  Receive Date: 20211027
  Receipt Date: 20211027
  Transmission Date: 20220303
  Serious: No
  Sender: FDA-Public Use
  Company Number: None

PATIENT
  Age: 64 Year
  Sex: Male

DRUGS (1)
  1. CASIRIVIMAB\IMDEVIMAB [Suspect]
     Active Substance: CASIRIVIMAB\IMDEVIMAB
     Indication: Upper respiratory tract infection
     Route: 042
     Dates: start: 20210912, end: 20210912

REACTIONS (4)
  - Confusional state [None]
  - Tachypnoea [None]
  - Tachycardia [None]
  - COVID-19 [None]

NARRATIVE: CASE EVENT DATE: 20210913
